FAERS Safety Report 9966804 (Version 2)
Quarter: 2014Q1

REPORT INFORMATION
  Report Type: Report from Study
  Country: US (occurrence: US)
  Receive Date: 20140305
  Receipt Date: 20140305
  Transmission Date: 20141002
  Serious: Yes (Other)
  Sender: FDA-Public Use
  Company Number: US-ABBVIE-13P-163-1071744-00

PATIENT
  Sex: Female

DRUGS (9)
  1. HUMIRA [Suspect]
     Indication: CROHN^S DISEASE
     Dates: start: 20121207
  2. PURINETHOL [Suspect]
     Indication: PRODUCT USED FOR UNKNOWN INDICATION
  3. LISINOPRIL [Concomitant]
     Indication: HYPERTENSION
     Dosage: 10 MG DAILY
  4. MERCAPTOPURINE [Concomitant]
     Indication: PRODUCT USED FOR UNKNOWN INDICATION
     Dosage: 50 MG DAILY
  5. TRAZODONE [Concomitant]
     Indication: INSOMNIA
     Dosage: 100 MG DAILY
  6. SAVELLA [Concomitant]
     Indication: FIBROMYALGIA
     Dosage: 50 MG DAILY
  7. OXYCONTIN [Concomitant]
     Indication: PAIN
     Dosage: 20 MG (2) DAILY
  8. OXYCONTIN [Concomitant]
     Indication: BACK PAIN
  9. ENTOCORT [Concomitant]
     Indication: PRODUCT USED FOR UNKNOWN INDICATION

REACTIONS (1)
  - Squamous cell carcinoma [Not Recovered/Not Resolved]
